FAERS Safety Report 23300659 (Version 2)
Quarter: 2024Q1

REPORT INFORMATION
  Report Type: Other
  Country: US (occurrence: None)
  Receive Date: 20231215
  Receipt Date: 20240302
  Transmission Date: 20240410
  Serious: Yes (Other)
  Sender: FDA-Public Use
  Company Number: US-ROCHE-3470328

PATIENT
  Sex: Female

DRUGS (2)
  1. ACTEMRA [Suspect]
     Active Substance: TOCILIZUMAB
     Indication: Product used for unknown indication
     Route: 058
  2. ACTEMRA [Suspect]
     Active Substance: TOCILIZUMAB

REACTIONS (9)
  - Femur fracture [Unknown]
  - Ill-defined disorder [Unknown]
  - Carpal tunnel syndrome [Unknown]
  - Cyst [Unknown]
  - Malaise [Unknown]
  - Pain [Unknown]
  - Knee operation [Unknown]
  - Spinal operation [Unknown]
  - Surgery [Unknown]
